FAERS Safety Report 8290277-7 (Version None)
Quarter: 2012Q1

REPORT INFORMATION
  Report Type: 
  Country: None (occurrence: None)
  Receive Date: 20120316
  Receipt Date: 20081215
  Transmission Date: 20120608
  Serious: Yes (Other)
  Sender: FDA-Public Use
  Company Number: PHEH2008US11076

PATIENT
  Sex: Male

DRUGS (1)
  1. TEKTURNA [Suspect]
     Dosage: UNK
     Dates: start: 20070701

REACTIONS (1)
  - ANGIOEDEMA [None]
